FAERS Safety Report 16881429 (Version 1)
Quarter: 2019Q4

REPORT INFORMATION
  Report Type: Spontaneous
  Country: CA (occurrence: CA)
  Receive Date: 20191003
  Receipt Date: 20191003
  Transmission Date: 20200122
  Serious: Yes (Other)
  Sender: FDA-Public Use
  Company Number: CA-SAMSUNG BIOEPIS-SB-2019-28844

PATIENT
  Age: 24 Year
  Sex: Male
  Weight: 85 kg

DRUGS (1)
  1. INFLIXIMAB [Suspect]
     Active Substance: INFLIXIMAB
     Indication: COLITIS ULCERATIVE
     Route: 042

REACTIONS (7)
  - Incorrect dose administered [Unknown]
  - Weight increased [Unknown]
  - Off label use [Unknown]
  - Heart rate decreased [Unknown]
  - Product use issue [Unknown]
  - Blood pressure fluctuation [Unknown]
  - Drug level below therapeutic [Unknown]
